FAERS Safety Report 5365345-X (Version None)
Quarter: 2007Q2

REPORT INFORMATION
  Report Type: 
  Country: None (occurrence: None)
  Receive Date: 20070530
  Receipt Date: 20070305
  Transmission Date: 20071010
  Serious: No
  Sender: FDA-Public Use
  Company Number: 2006PV006860

PATIENT
  Age: 61 Year
  Sex: Female
  Weight: 108.8633 kg

DRUGS (9)
  1. BYETTA [Suspect]
     Indication: DIABETES MELLITUS NON-INSULIN-DEPENDENT
     Dosage: 5 MCG; BID; SC, 10 MCG; BID; SC, 10 MCG; BID; SC, 5 MCG; BID; SC
     Route: 058
     Dates: start: 20051102, end: 20051202
  2. BYETTA [Suspect]
     Indication: DIABETES MELLITUS NON-INSULIN-DEPENDENT
     Dosage: 5 MCG; BID; SC, 10 MCG; BID; SC, 10 MCG; BID; SC, 5 MCG; BID; SC
     Route: 058
     Dates: start: 20060201, end: 20060401
  3. BYETTA [Suspect]
     Indication: DIABETES MELLITUS NON-INSULIN-DEPENDENT
     Dosage: 5 MCG; BID; SC, 10 MCG; BID; SC, 10 MCG; BID; SC, 5 MCG; BID; SC
     Route: 058
     Dates: start: 20051203
  4. BYETTA [Suspect]
     Indication: DIABETES MELLITUS NON-INSULIN-DEPENDENT
     Dosage: 5 MCG; BID; SC, 10 MCG; BID; SC, 10 MCG; BID; SC, 5 MCG; BID; SC
     Route: 058
     Dates: start: 20060401
  5. BYETTA [Suspect]
  6. AVANDAMET [Concomitant]
  7. NORTRIPTYLINE HCL [Concomitant]
  8. ZOCOR [Concomitant]
  9. MECLIZINE [Concomitant]

REACTIONS (4)
  - DECREASED APPETITE [None]
  - NAUSEA [None]
  - VOMITING [None]
  - WEIGHT DECREASED [None]
